FAERS Safety Report 6722789-9 (Version None)
Quarter: 2010Q2

REPORT INFORMATION
  Report Type: 
  Country: None (occurrence: None)
  Receive Date: 20100512
  Receipt Date: 20100512
  Transmission Date: 20101027
  Serious: Yes (Hospitalization)
  Sender: FDA-Public Use
  Company Number: None

PATIENT
  Sex: Male
  Weight: 44 kg

DRUGS (9)
  1. CARBOPLATIN [Suspect]
     Dosage: 589 MG
  2. ERBITUX [Suspect]
     Dosage: 381.7 MG
  3. TAXOL [Suspect]
     Dosage: 305 MG
  4. OXYCODONE [Concomitant]
  5. PRILOSEC [Concomitant]
  6. REGLAN [Concomitant]
  7. ZOCOR [Concomitant]
  8. ZOFRAN [Concomitant]
  9. MAGNESIUM OXIDE [Concomitant]

REACTIONS (5)
  - ABDOMINAL ABSCESS [None]
  - MALIGNANT NEOPLASM PROGRESSION [None]
  - METASTASES TO SMALL INTESTINE [None]
  - NON-SMALL CELL LUNG CANCER [None]
  - SMALL INTESTINAL PERFORATION [None]
